FAERS Safety Report 4688821-1 (Version None)
Quarter: 2005Q2

REPORT INFORMATION
  Report Type: 
  Country: None (occurrence: None)
  Receive Date: 20050613
  Receipt Date: 20050610
  Transmission Date: 20051028
  Serious: Yes (Hospitalization)
  Sender: FDA-Public Use
  Company Number: US-GLAXOSMITHKLINE-A0562115A

PATIENT
  Age: 46 Year
  Sex: Female

DRUGS (2)
  1. LITHIUM CARBONATE [Suspect]
     Indication: BIPOLAR I DISORDER
     Route: 048
  2. CLONAZEPAM [Concomitant]

REACTIONS (6)
  - CONSTIPATION [None]
  - FATIGUE [None]
  - THIRST [None]
  - TREATMENT NONCOMPLIANCE [None]
  - TREMOR [None]
  - VISION BLURRED [None]
